FAERS Safety Report 8131215-7 (Version None)
Quarter: 2012Q1

REPORT INFORMATION
  Report Type: 
  Country: None (occurrence: None)
  Receive Date: 20120103
  Receipt Date: 20111117
  Transmission Date: 20120608
  Serious: No
  Sender: FDA-Public Use
  Company Number: AE-2011-003691

PATIENT
  Age: 52 Year
  Sex: Male
  Weight: 86.637 kg

DRUGS (5)
  1. ABILIFY [Concomitant]
  2. INCIVEK [Suspect]
     Dosage: 2571.4286 MG (750 MG,1 IN 7 HR),ORAL
     Route: 048
     Dates: start: 20110918
  3. PEGASYS [Concomitant]
  4. RIBAVIRIN [Concomitant]
  5. DIOVAN [Concomitant]

REACTIONS (3)
  - RASH PRURITIC [None]
  - ANAL PRURITUS [None]
  - ANORECTAL DISCOMFORT [None]
